FAERS Safety Report 6557516-1 (Version None)
Quarter: 2010Q1

REPORT INFORMATION
  Report Type: 
  Country: None (occurrence: None)
  Receive Date: 20100129
  Receipt Date: 20100119
  Transmission Date: 20100710
  Serious: Yes (Hospitalization)
  Sender: FDA-Public Use
  Company Number: GB-ROCHE-680402

PATIENT
  Sex: Male
  Weight: 78 kg

DRUGS (1)
  1. CAPECITABINE [Suspect]
     Indication: MALIGNANT HEPATOBILIARY NEOPLASM
     Dosage: LAST DOSE PRIOR TO SAE: 20 MAR 2009. CURRENT CYCLE: 6. NUMBER OF TREATMENT DAYS COMPLETED: 7
     Route: 065

REACTIONS (4)
  - DIARRHOEA [None]
  - JAUNDICE [None]
  - RENAL FAILURE [None]
  - SEPSIS [None]
